FAERS Safety Report 5622571-X (Version None)
Quarter: 2008Q1

REPORT INFORMATION
  Report Type: 
  Country: None (occurrence: None)
  Receive Date: 20080114
  Receipt Date: 20071113
  Transmission Date: 20080703
  Serious: Yes (Hospitalization)
  Sender: FDA-Public Use
  Company Number: A03200706506

PATIENT
  Age: 55 Year
  Sex: Male

DRUGS (6)
  1. PLAVIX [Suspect]
     Indication: STENT PLACEMENT
     Dosage: 75 MG BID - ORAL
     Route: 048
     Dates: start: 20070904, end: 20070907
  2. HYDROCHLOROTHIAZIDE [Concomitant]
  3. CARVEDILOL [Concomitant]
  4. INSULIN [Concomitant]
  5. ACETYLSALICYLIC ACID SRT [Concomitant]
  6. CLONIDINE HCL [Concomitant]

REACTIONS (6)
  - ANAPHYLACTIC REACTION [None]
  - OVERDOSE [None]
  - PRURITUS [None]
  - RASH ERYTHEMATOUS [None]
  - THROAT IRRITATION [None]
  - THROAT TIGHTNESS [None]
